FAERS Safety Report 8256776-9 (Version None)
Quarter: 2012Q2

REPORT INFORMATION
  Report Type: 
  Country: None (occurrence: None)
  Receive Date: 20120403
  Receipt Date: 20120330
  Transmission Date: 20120825
  Serious: Yes (Other)
  Sender: FDA-Public Use
  Company Number: US-JNJFOC-20120400483

PATIENT
  Age: 46 Year
  Sex: Male
  Weight: 81.65 kg

DRUGS (1)
  1. LISTERINE MOUTHWASH ORIGINAL [Suspect]
     Indication: ALCOHOL USE
     Dosage: 1.5 LITERS ONCE
     Route: 048
     Dates: start: 20120330

REACTIONS (4)
  - LOSS OF CONSCIOUSNESS [None]
  - DRUG ABUSE [None]
  - INCORRECT ROUTE OF DRUG ADMINISTRATION [None]
  - INTENTIONAL OVERDOSE [None]
